FAERS Safety Report 8602229-5 (Version None)
Quarter: 2012Q3

REPORT INFORMATION
  Report Type: 
  Country: None (occurrence: None)
  Receive Date: 20120817
  Receipt Date: 20120813
  Transmission Date: 20120928
  Serious: Yes (Other)
  Sender: FDA-Public Use
  Company Number: US-PFIZER INC-2012182008

PATIENT
  Age: 79 Year
  Sex: Female
  Weight: 77 kg

DRUGS (16)
  1. LYRICA [Suspect]
     Dosage: 50 MG, UNK
     Dates: start: 20120101, end: 20120701
  2. MULTI-VITAMINS [Concomitant]
     Dosage: UNK
  3. CALCIUM [Concomitant]
     Dosage: UNK, AS NEEDED
  4. TRIGLYCERIDES [Concomitant]
     Indication: LIPID METABOLISM DISORDER
     Dosage: UNK, 3 TBSP DAILY
  5. ASPIRIN [Concomitant]
     Dosage: 81 MG, ALTERNATE DAY
  6. FISH OIL [Concomitant]
     Dosage: 1000 MG, DAILY
  7. LEVOXYL [Concomitant]
     Dosage: 88 UG, UNK
  8. LYRICA [Suspect]
     Indication: NEUROPATHY PERIPHERAL
     Dosage: 100 MG, 2X/DAY
     Route: 048
     Dates: start: 20120301, end: 20120101
  9. LORATADINE [Concomitant]
     Dosage: 10 MG, UNK
  10. VITAMIN B-12 [Concomitant]
     Dosage: 1000 UG, MONTHLY
  11. FAMOTIDINE [Concomitant]
     Dosage: UNK
  12. NICOTINIC ACID AMIDE [Concomitant]
     Dosage: UNK
  13. HYDROCHLOROTHIAZIDE [Concomitant]
     Dosage: 25 MG, DAILY
  14. METFORMIN [Concomitant]
     Dosage: 500 MG, 2X/DAY
  15. LIPASE [Concomitant]
     Indication: DYSPEPSIA
     Dosage: UNK
  16. RECLAST [Concomitant]
     Dosage: 5 MG, YEARLY

REACTIONS (9)
  - PAIN [None]
  - DRUG INEFFECTIVE [None]
  - FALL [None]
  - PERONEAL NERVE PALSY [None]
  - GAIT DISTURBANCE [None]
  - HYPOAESTHESIA [None]
  - INSOMNIA [None]
  - PARAESTHESIA [None]
  - INTERVERTEBRAL DISC DISORDER [None]
